FAERS Safety Report 7290481-0 (Version None)
Quarter: 2011Q1

REPORT INFORMATION
  Report Type: 
  Country: None (occurrence: None)
  Receive Date: 20110131
  Receipt Date: 20101231
  Transmission Date: 20110831
  Serious: Yes (Death)
  Sender: FDA-Public Use
  Company Number: AUR-APL-2011-00097

PATIENT
  Age: 55 Year
  Sex: Female

DRUGS (6)
  1. ZOLPIDEM [Suspect]
  2. MIRTAZAPINE [Suspect]
  3. OLANZAPINE [Suspect]
  4. RISPERDONE [Suspect]
  5. LITHIUM CARBONATE [Suspect]
  6. AMITRIPTYLINE HCL [Suspect]

REACTIONS (1)
  - COMPLETED SUICIDE [None]
